FAERS Safety Report 5485501-X (Version None)
Quarter: 2007Q4

REPORT INFORMATION
  Report Type: 
  Country: None (occurrence: None)
  Receive Date: 20071015
  Receipt Date: 20071009
  Transmission Date: 20080405
  Serious: Yes (Hospitalization)
  Sender: FDA-Public Use
  Company Number: GB-WYE-H00574407

PATIENT
  Age: 76 Year
  Sex: Female

DRUGS (5)
  1. IBUPROFEN [Suspect]
     Indication: OSTEOARTHRITIS
     Dosage: UNKNOWN
     Route: 048
  2. CALCIUM CHANNEL BLOCKERS [Concomitant]
     Indication: HYPERTENSION
     Dosage: UNKNOWN
     Route: 065
  3. CALCIUM CHANNEL BLOCKERS [Concomitant]
     Dosage: UNKNOWN
     Route: 065
  4. CALCIUM CARBONATE [Suspect]
     Indication: DYSPEPSIA
     Route: 048
  5. SALBUTAMOL [Concomitant]
     Indication: CHRONIC OBSTRUCTIVE PULMONARY DISEASE
     Dosage: UNKNOWN
     Route: 055

REACTIONS (1)
  - MILK-ALKALI SYNDROME [None]
